FAERS Safety Report 13665211 (Version 1)
Quarter: 2017Q2

REPORT INFORMATION
  Report Type: Spontaneous
  Country: US (occurrence: US)
  Receive Date: 20170619
  Receipt Date: 20170619
  Transmission Date: 20170830
  Serious: Yes (Other)
  Sender: FDA-Public Use
  Company Number: None

PATIENT
  Age: 60 Year
  Sex: Male
  Weight: 83.25 kg

DRUGS (3)
  1. VITAMIN C [Concomitant]
     Active Substance: ASCORBIC ACID
  2. VITAMIN D [Concomitant]
     Active Substance: CHOLECALCIFEROL
  3. DICLOFENAC SOD EC [Suspect]
     Active Substance: DICLOFENAC SODIUM
     Indication: CARTILAGE INJURY
     Dosage: ?          QUANTITY:1 TABLET(S);?
     Route: 048
     Dates: start: 20170608, end: 20170619

REACTIONS (2)
  - Chromaturia [None]
  - Fatigue [None]

NARRATIVE: CASE EVENT DATE: 20170619
